FAERS Safety Report 7128445-X (Version None)
Quarter: 2010Q4

REPORT INFORMATION
  Report Type: 
  Country: None (occurrence: None)
  Receive Date: 20101130
  Receipt Date: 20101116
  Transmission Date: 20110411
  Serious: Yes (Other)
  Sender: FDA-Public Use
  Company Number: US-CELGENEUS-163-21880-10112006

PATIENT
  Age: 66 Year
  Sex: Male

DRUGS (10)
  1. REVLIMID [Suspect]
     Route: 048
  2. FLUDARABINE [Suspect]
     Route: 051
  3. RITUXIMAB [Suspect]
     Route: 065
  4. TRIMETHOPRIM + SULFAMETHOXAZOLE [Concomitant]
     Indication: INFECTION
     Route: 065
  5. TRIMETHOPRIM + SULFAMETHOXAZOLE [Concomitant]
     Indication: PROPHYLAXIS
  6. ACYCLOVIR SODIUM [Concomitant]
     Indication: INFECTION
     Route: 065
  7. ACYCLOVIR SODIUM [Concomitant]
     Indication: PROPHYLAXIS
  8. ASPIRIN [Concomitant]
     Route: 065
  9. ALLOPURINOL [Concomitant]
     Route: 065
  10. HYDRATION [Concomitant]
     Route: 051

REACTIONS (7)
  - INFLUENZA [None]
  - NEUTROPENIA [None]
  - PALMAR-PLANTAR ERYTHRODYSAESTHESIA SYNDROME [None]
  - RHABDOMYOLYSIS [None]
  - SQUAMOUS CELL CARCINOMA [None]
  - THROMBOCYTOPENIA [None]
  - TUMOUR FLARE [None]
